FAERS Safety Report 8563547-2 (Version None)
Quarter: 2012Q3

REPORT INFORMATION
  Report Type: 
  Country: None (occurrence: None)
  Receive Date: 20120803
  Receipt Date: 20120720
  Transmission Date: 20120928
  Serious: No
  Sender: FDA-Public Use
  Company Number: US-009507513-1207USA008351

PATIENT

DRUGS (1)
  1. AZASITE [Suspect]
     Indication: EYE INFECTION

REACTIONS (3)
  - DRUG DOSE OMISSION [None]
  - NO ADVERSE EVENT [None]
  - PRODUCT QUALITY ISSUE [None]
